FAERS Safety Report 19415716 (Version 2)
Quarter: 2021Q3

REPORT INFORMATION
  Report Type: Spontaneous
  Country: US (occurrence: US)
  Receive Date: 20210615
  Receipt Date: 20210723
  Transmission Date: 20211014
  Serious: Yes (Other)
  Sender: FDA-Public Use
  Company Number: US-JNJFOC-20210614236

PATIENT

DRUGS (1)
  1. NEUTROGENA SUN PROTECTION UNSPECIFIED [TITANIUM DIOXIDE\ZINC OXIDE] [Suspect]
     Active Substance: TITANIUM DIOXIDE\ZINC OXIDE
     Indication: PROPHYLAXIS AGAINST SOLAR RADIATION
     Dosage: IN MORNING EVERY DAY FOR YEARS
     Route: 061

REACTIONS (6)
  - Application site papules [Recovered/Resolved]
  - Application site pustules [Recovered/Resolved]
  - Application site swelling [Recovered/Resolved]
  - Application site erythema [Recovered/Resolved]
  - Skin cancer [Unknown]
  - Application site pruritus [Recovered/Resolved]
